APPROVED DRUG PRODUCT: METHYLIN
Active Ingredient: METHYLPHENIDATE HYDROCHLORIDE
Strength: 5MG **Federal Register determination that product was not discontinued or withdrawn for safety or effectiveness reasons**
Dosage Form/Route: TABLET, CHEWABLE;ORAL
Application: N021475 | Product #002
Applicant: SPECGX LLC
Approved: Apr 15, 2003 | RLD: Yes | RS: No | Type: DISCN